FAERS Safety Report 19458725 (Version 1)
Quarter: 2021Q2

REPORT INFORMATION
  Report Type: Spontaneous
  Country: US (occurrence: US)
  Receive Date: 20210625
  Receipt Date: 20210625
  Transmission Date: 20210717
  Serious: No
  Sender: FDA-Public Use
  Company Number: None

PATIENT
  Age: 76 Year
  Sex: Male
  Weight: 120 kg

DRUGS (1)
  1. DOCETAXEL (DOCETAXEL 10MG/ML INJ, CONC) [Suspect]
     Active Substance: DOCETAXEL ANHYDROUS
     Indication: PROSTATE CANCER METASTATIC
     Route: 042
     Dates: start: 20200812, end: 20200924

REACTIONS (2)
  - Mucosal inflammation [None]
  - Stomatitis [None]
